FAERS Safety Report 22925499 (Version 2)
Quarter: 2024Q1

REPORT INFORMATION
  Report Type: Report from Study
  Country: GB (occurrence: GB)
  Receive Date: 20230908
  Receipt Date: 20240216
  Transmission Date: 20240409
  Serious: Yes (Hospitalization)
  Sender: FDA-Public Use
  Company Number: GB-SA-SAC20230818001484

PATIENT
  Age: 76 Year
  Sex: Male
  Weight: 77.6 kg

DRUGS (194)
  1. DEXAMETHASONE [Suspect]
     Active Substance: DEXAMETHASONE
     Indication: Plasma cell myeloma refractory
     Dosage: TIME INTERVAL: TOTAL: 10 MG, 1X; IN TOTAL, DURATION: 1 DAYS
     Route: 065
     Dates: start: 20230524, end: 20230524
  2. DEXAMETHASONE [Suspect]
     Active Substance: DEXAMETHASONE
     Indication: Plasma cell myeloma refractory
     Dosage: 10 MG, QD, DURATION: 1 DAYS
     Route: 065
     Dates: start: 20230116, end: 20230116
  3. DEXAMETHASONE [Suspect]
     Active Substance: DEXAMETHASONE
     Indication: Plasma cell myeloma refractory
     Dosage: 10 MG, D8; DURATION: 1 DAYS
     Route: 065
     Dates: start: 20230213, end: 20230213
  4. DEXAMETHASONE [Suspect]
     Active Substance: DEXAMETHASONE
     Indication: Plasma cell myeloma refractory
     Dosage: 10 MG, QD, DURATION: 1 DAYS
     Route: 065
     Dates: start: 20230313, end: 20230313
  5. DEXAMETHASONE [Suspect]
     Active Substance: DEXAMETHASONE
     Indication: Plasma cell myeloma refractory
     Dosage: 10 MG, D8
     Route: 065
     Dates: start: 20221122, end: 20221122
  6. DEXAMETHASONE [Suspect]
     Active Substance: DEXAMETHASONE
     Indication: Plasma cell myeloma refractory
     Dosage: 10 MG, QD, DURATION: 23 DAYS
     Route: 065
     Dates: start: 20230327, end: 20230418
  7. DEXAMETHASONE [Suspect]
     Active Substance: DEXAMETHASONE
     Indication: Plasma cell myeloma refractory
     Dosage: 10 MG, QD, DURATION: 1 DAYS
     Route: 065
     Dates: start: 20230306, end: 20230306
  8. DEXAMETHASONE [Suspect]
     Active Substance: DEXAMETHASONE
     Indication: Plasma cell myeloma refractory
     Dosage: 10 MG, QW, DURATION: 22 DAYS
     Route: 065
     Dates: start: 20230621, end: 20230712
  9. DEXAMETHASONE [Suspect]
     Active Substance: DEXAMETHASONE
     Indication: Plasma cell myeloma refractory
     Dosage: TIME INTERVAL: TOTAL: 10 MG, 1X; IN TOTAL, DURATION: 1 DAYS
     Route: 065
     Dates: start: 20230614, end: 20230614
  10. DEXAMETHASONE [Suspect]
     Active Substance: DEXAMETHASONE
     Indication: Plasma cell myeloma refractory
     Dosage: 10 MG, QD, DURATION: 1 DAYS
     Route: 065
     Dates: start: 20221012, end: 20221012
  11. DEXAMETHASONE [Suspect]
     Active Substance: DEXAMETHASONE
     Indication: Plasma cell myeloma refractory
     Dosage: 10 MG, QD, DURATION: 1 DAYS
     Route: 065
     Dates: start: 20220116, end: 20220116
  12. DEXAMETHASONE [Suspect]
     Active Substance: DEXAMETHASONE
     Indication: Plasma cell myeloma refractory
     Dosage: 10 MG, QD, DURATION: 1 DAYS
     Route: 065
     Dates: start: 20230320, end: 20230320
  13. DEXAMETHASONE [Suspect]
     Active Substance: DEXAMETHASONE
     Indication: Plasma cell myeloma refractory
     Dosage: 10 MG, QD, DURATION: 1 DAYS
     Route: 065
     Dates: start: 20230419, end: 20230419
  14. DEXAMETHASONE [Suspect]
     Active Substance: DEXAMETHASONE
     Indication: Plasma cell myeloma refractory
     Dosage: 10 MG, QD, DURATION: 1 DAYS
     Route: 065
     Dates: start: 20230206, end: 20230206
  15. DEXAMETHASONE [Suspect]
     Active Substance: DEXAMETHASONE
     Indication: Plasma cell myeloma refractory
     Dosage: 10 MG, D22; DURATION: 1 DAYS
     Route: 065
     Dates: start: 20230103, end: 20230103
  16. DEXAMETHASONE [Suspect]
     Active Substance: DEXAMETHASONE
     Indication: Plasma cell myeloma refractory
     Dosage: 10 MG, QD, DURATION: 1 DAYS
     Route: 065
     Dates: start: 20230412, end: 20230412
  17. DEXAMETHASONE [Suspect]
     Active Substance: DEXAMETHASONE
     Indication: Plasma cell myeloma refractory
     Dosage: 10 MG, QD, DURATION: 1 DAYS
     Route: 065
     Dates: start: 20221227, end: 20221227
  18. CIPROFLOXACIN [Concomitant]
     Active Substance: CIPROFLOXACIN
     Indication: Prophylaxis
     Dosage: UNK, DURATION: 2 DAYS
     Dates: start: 20230306, end: 20230307
  19. COTRIMOXAZOLE [Concomitant]
     Active Substance: SULFAMETHOXAZOLE\TRIMETHOPRIM
     Indication: Antifungal prophylaxis
     Dosage: 960 MG, MON/WED/FRI; DURATION: 1 DAYS
     Dates: start: 20230109, end: 20230109
  20. COTRIMOXAZOLE [Concomitant]
     Active Substance: SULFAMETHOXAZOLE\TRIMETHOPRIM
     Indication: Antifungal prophylaxis
     Dosage: 960 MG, MON/WED/FRI 28 DAYS; DURATION: 29 DAYS
     Dates: start: 20230621, end: 20230719
  21. COTRIMOXAZOLE [Concomitant]
     Active Substance: SULFAMETHOXAZOLE\TRIMETHOPRIM
     Indication: Antifungal prophylaxis
     Dosage: 960 MG, MON/WED/FRI; DURATION: 29 DAYS
     Dates: start: 20230412, end: 20230510
  22. COTRIMOXAZOLE [Concomitant]
     Active Substance: SULFAMETHOXAZOLE\TRIMETHOPRIM
     Indication: Antifungal prophylaxis
     Dosage: TIME INTERVAL: CYCLICAL: UNK UNK, QCY; CYCLICAL, DURATION: 28 DAYS?					;
     Dates: start: 20230524, end: 20230620
  23. COTRIMOXAZOLE [Concomitant]
     Active Substance: SULFAMETHOXAZOLE\TRIMETHOPRIM
     Indication: Antifungal prophylaxis
     Dosage: UNK
     Dates: start: 2020
  24. COTRIMOXAZOLE [Concomitant]
     Active Substance: SULFAMETHOXAZOLE\TRIMETHOPRIM
     Indication: Antifungal prophylaxis
     Dosage: UNK UNK, QCY; DURATRION: 28 DAYS
     Dates: start: 20230726, end: 20230822
  25. COTRIMOXAZOLE [Concomitant]
     Active Substance: SULFAMETHOXAZOLE\TRIMETHOPRIM
     Indication: Antifungal prophylaxis
     Dosage: UNK
     Dates: start: 202303
  26. COTRIMOXAZOLE [Concomitant]
     Active Substance: SULFAMETHOXAZOLE\TRIMETHOPRIM
     Indication: Antifungal prophylaxis
     Dosage: 960 MG, MON/WED/FRI 28 DAYS
     Dates: start: 20230524
  27. COTRIMOXAZOLE [Concomitant]
     Active Substance: SULFAMETHOXAZOLE\TRIMETHOPRIM
     Indication: Antifungal prophylaxis
     Dosage: 960 MG, MON/WED/FRI;  DURATION: 29 DAYS
     Dates: start: 20221012, end: 20221109
  28. COTRIMOXAZOLE [Concomitant]
     Active Substance: SULFAMETHOXAZOLE\TRIMETHOPRIM
     Indication: Antifungal prophylaxis
     Dosage: 960 MG, MON/WED/FRI; DURATION: 1 DAYS
     Dates: start: 20221115, end: 20221115
  29. COTRIMOXAZOLE [Concomitant]
     Active Substance: SULFAMETHOXAZOLE\TRIMETHOPRIM
     Indication: Antifungal prophylaxis
     Dosage: 960 MG, MON/WED/FRI
     Dates: start: 20230726
  30. COTRIMOXAZOLE [Concomitant]
     Active Substance: SULFAMETHOXAZOLE\TRIMETHOPRIM
     Indication: Antifungal prophylaxis
     Dosage: 960 MG, MON/WED/FRI; DURATION: 29 DAYS
     Dates: start: 20230206, end: 20230306
  31. COTRIMOXAZOLE [Concomitant]
     Active Substance: SULFAMETHOXAZOLE\TRIMETHOPRIM
     Indication: Antifungal prophylaxis
     Dosage: 960 MG, QD, DURATION: 29 DAYS
     Dates: start: 20230306, end: 20230403
  32. COTRIMOXAZOLE [Concomitant]
     Active Substance: SULFAMETHOXAZOLE\TRIMETHOPRIM
     Indication: Antifungal prophylaxis
     Dosage: UNK; DURATION: 28 DAYS
     Dates: start: 20221115, end: 20221212
  33. COTRIMOXAZOLE [Concomitant]
     Active Substance: SULFAMETHOXAZOLE\TRIMETHOPRIM
     Indication: Antifungal prophylaxis
     Dosage: UNK;
     Dates: start: 202303, end: 20230307
  34. COTRIMOXAZOLE [Concomitant]
     Active Substance: SULFAMETHOXAZOLE\TRIMETHOPRIM
     Indication: Antifungal prophylaxis
     Dosage: UNK; DURATION: 1 MONTH
     Dates: start: 20230206, end: 20230305
  35. COTRIMOXAZOLE [Concomitant]
     Active Substance: SULFAMETHOXAZOLE\TRIMETHOPRIM
     Indication: Antifungal prophylaxis
     Dosage: UNK;
     Dates: start: 20221213, end: 20221213
  36. COTRIMOXAZOLE [Concomitant]
     Active Substance: SULFAMETHOXAZOLE\TRIMETHOPRIM
     Indication: Antifungal prophylaxis
     Dosage: UNK UNK, QCY; DURATION: 28 DAYS
     Dates: start: 20230621, end: 20230718
  37. COTRIMOXAZOLE [Concomitant]
     Active Substance: SULFAMETHOXAZOLE\TRIMETHOPRIM
     Indication: Antifungal prophylaxis
     Dosage: TIME INTERVAL: CYCLICAL: UNK UNK, QCY; CYCLICAL, DURATION: 42 DAYS?					;
     Dates: start: 20230412, end: 20230523
  38. COTRIMOXAZOLE [Concomitant]
     Active Substance: SULFAMETHOXAZOLE\TRIMETHOPRIM
     Indication: Antifungal prophylaxis
     Dosage: UNK; DURATION: 28 DAYS
     Dates: start: 20230109, end: 20230205
  39. FILGRASTIM [Concomitant]
     Active Substance: FILGRASTIM
     Indication: Prophylaxis
     Dosage: 300 MG, BIW
     Dates: start: 20230726
  40. FILGRASTIM [Concomitant]
     Active Substance: FILGRASTIM
     Indication: Prophylaxis
     Dosage: 300 MG/M2, BIW, DURATION: 1 DAYS
     Dates: start: 20230306, end: 20230306
  41. FILGRASTIM [Concomitant]
     Active Substance: FILGRASTIM
     Indication: Prophylaxis
     Dosage: 300 UG, QW, DURATION: 1 MONTHS
     Dates: start: 20221010, end: 20221109
  42. FILGRASTIM [Concomitant]
     Active Substance: FILGRASTIM
     Indication: Prophylaxis
     Dosage: 300 UG, BIW, DURATION: 29 DAYS
     Dates: start: 20221213, end: 20230110
  43. FILGRASTIM [Concomitant]
     Active Substance: FILGRASTIM
     Indication: Prophylaxis
     Dosage: 300 UG, BIW, DURATION: 1 DAYS
     Dates: start: 20230109, end: 20230109
  44. FILGRASTIM [Concomitant]
     Active Substance: FILGRASTIM
     Indication: Prophylaxis
     Dosage: 300 UG, BIW, UNIT DOSE: 600MCG, DURATION: 29 DAYS
     Dates: start: 20221115, end: 20221213
  45. FILGRASTIM [Concomitant]
     Active Substance: FILGRASTIM
     Indication: Prophylaxis
     Dosage: 300 MG/M2, BIW, DURATION: 1 DAY
     Dates: start: 20230412, end: 20230412
  46. FILGRASTIM [Concomitant]
     Active Substance: FILGRASTIM
     Indication: Prophylaxis
     Dosage: 300 MG, BIW
     Dates: start: 20230524
  47. FILGRASTIM [Concomitant]
     Active Substance: FILGRASTIM
     Indication: Prophylaxis
     Dosage: 300 MG, BIW, DURATION: 29 DAYS
     Dates: start: 20230621, end: 20230719
  48. FILGRASTIM [Concomitant]
     Active Substance: FILGRASTIM
     Indication: Prophylaxis
     Dosage: 300 UG, BIW, DURATION: 16 DAYS
     Dates: start: 20230206, end: 20230221
  49. FILGRASTIM [Concomitant]
     Active Substance: FILGRASTIM
     Indication: Prophylaxis
     Dosage: UNK; DURATION: 28 DAYS
     Dates: start: 20230726, end: 20230822
  50. FILGRASTIM [Concomitant]
     Active Substance: FILGRASTIM
     Indication: Prophylaxis
     Dosage: UNK
     Dates: start: 20221012
  51. FILGRASTIM [Concomitant]
     Active Substance: FILGRASTIM
     Indication: Prophylaxis
     Dosage: TIME INTERVAL: CYCLICAL: UNK UNK, QCY; CYCLICAL, DURATION: 28 DAYS?					;
     Dates: start: 20230306, end: 20230402
  52. FILGRASTIM [Concomitant]
     Active Substance: FILGRASTIM
     Indication: Prophylaxis
     Dosage: UNK UNK, QCY; DURATION: 28 DAYS
     Dates: start: 20230524, end: 20230620
  53. FILGRASTIM [Concomitant]
     Active Substance: FILGRASTIM
     Indication: Prophylaxis
     Dosage: UNK UNK, QCY; DURATION: 42 DAYS
     Dates: start: 20230412, end: 20230523
  54. FILGRASTIM [Concomitant]
     Active Substance: FILGRASTIM
     Indication: Prophylaxis
     Dosage: UNK; DURATION: 1 MONTH
     Dates: start: 20230206, end: 20230305
  55. FILGRASTIM [Concomitant]
     Active Substance: FILGRASTIM
     Indication: Prophylaxis
     Dosage: UNK; DURATION: 28 DAYS
     Dates: start: 20230621, end: 20230718
  56. FILGRASTIM [Concomitant]
     Active Substance: FILGRASTIM
     Indication: Prophylaxis
     Dosage: TIME INTERVAL: CYCLICAL: UNK UNK, QCY; CYCLICAL, DURATION: 28 DAYS
     Dates: start: 20221115, end: 20221212
  57. FILGRASTIM [Concomitant]
     Active Substance: FILGRASTIM
     Indication: Prophylaxis
     Dosage: UNK; DURATION: 28 DAYS
     Dates: start: 20230109, end: 20230205
  58. FILGRASTIM [Concomitant]
     Active Substance: FILGRASTIM
     Indication: Prophylaxis
     Dosage: TIME INTERVAL: CYCLICAL: UNK; CYCLICAL, DURATION: 1 DAY
     Dates: start: 20221213, end: 20221213
  59. FILGRASTIM [Concomitant]
     Active Substance: FILGRASTIM
     Indication: Prophylaxis
     Dosage: TIME INTERVAL: CYCLICAL: UNK UNK, QCY; CYCLICAL, DURATION: 29 DAYS?					;
     Dates: start: 20221012, end: 20221109
  60. FINASTERIDE [Concomitant]
     Active Substance: FINASTERIDE
     Indication: Benign prostatic hyperplasia
     Dosage: UNK;
     Dates: start: 2018
  61. FLUCONAZOLE [Concomitant]
     Active Substance: FLUCONAZOLE
     Indication: Infection prophylaxis
     Dosage: UNK;
     Dates: start: 2020
  62. HYDRALAZINE [Concomitant]
     Active Substance: HYDRALAZINE HYDROCHLORIDE
     Indication: Cardiac failure
     Dosage: UNK; ;
     Dates: start: 2020
  63. HYDRALAZINE [Concomitant]
     Active Substance: HYDRALAZINE HYDROCHLORIDE
     Indication: Cardiac failure
     Dosage: UNK; DURATION: 2 DAYS
     Dates: start: 20230418, end: 20230419
  64. ISOSORBIDE MONONITRATE [Concomitant]
     Active Substance: ISOSORBIDE MONONITRATE
     Indication: Product used for unknown indication
     Dosage: UNK; ;
     Dates: start: 2020
  65. LANSOPRAZOLE [Concomitant]
     Active Substance: LANSOPRAZOLE
     Indication: Prophylaxis
     Dosage: UNK;
     Dates: start: 2020
  66. LANSOPRAZOLE [Concomitant]
     Active Substance: LANSOPRAZOLE
     Indication: Prophylaxis
     Dosage: UNK;
     Dates: start: 2023
  67. MONTELUKAST [Concomitant]
     Active Substance: MONTELUKAST SODIUM
     Indication: Supportive care
     Dosage: TIME INTERVAL: CYCLICAL: 10 MG, QCY, CYCLICAL, DURATION: 1 DAYS
     Dates: start: 20221012, end: 20221012
  68. MONTELUKAST [Concomitant]
     Active Substance: MONTELUKAST SODIUM
     Indication: Supportive care
     Dosage: TIME INTERVAL: CYCLICAL: UNK UNK, QCY; CYCLICAL, DURATION: 1 DAY?					;
     Dates: start: 20221026, end: 20221026
  69. MONTELUKAST [Concomitant]
     Active Substance: MONTELUKAST SODIUM
     Indication: Supportive care
     Dosage: TIME INTERVAL: CYCLICAL: UNK UNK, QCY; CYCLICAL, DURATION: 1 DAY?					;
     Dates: start: 20221102, end: 20221102
  70. ONDANSETRON [Concomitant]
     Active Substance: ONDANSETRON
     Indication: Prophylaxis
     Dosage: UNK, CYCLIC; ;
     Dates: start: 2020
  71. ISATUXIMAB [Suspect]
     Active Substance: ISATUXIMAB
     Indication: Plasma cell myeloma refractory
     Dosage: 800 MG, QW, DURATION: 1 DAYS
     Route: 065
     Dates: start: 20221026, end: 20221026
  72. ISATUXIMAB [Suspect]
     Active Substance: ISATUXIMAB
     Indication: Plasma cell myeloma refractory
     Dosage: 800 MG, QW, DURATION: 1 DAYS
     Route: 065
     Dates: start: 20221012, end: 20221012
  73. ISATUXIMAB [Suspect]
     Active Substance: ISATUXIMAB
     Indication: Plasma cell myeloma refractory
     Dosage: TIME INTERVAL: TOTAL: 800 MG, 1X; IN TOTAL, DURATION: 1 DAY
     Route: 065
     Dates: start: 20230726, end: 20230726
  74. ISATUXIMAB [Suspect]
     Active Substance: ISATUXIMAB
     Indication: Plasma cell myeloma refractory
     Dosage: 800 MG, QW, DURATION: 1 DAYS
     Route: 065
     Dates: start: 20221019, end: 20221019
  75. ISATUXIMAB [Suspect]
     Active Substance: ISATUXIMAB
     Indication: Plasma cell myeloma refractory
     Dosage: 800 MG, QW, DURATION: 1 DAYS
     Route: 065
     Dates: start: 20221102, end: 20221102
  76. ISATUXIMAB [Suspect]
     Active Substance: ISATUXIMAB
     Indication: Plasma cell myeloma refractory
     Dosage: TIME INTERVAL: TOTAL: 800 MG, 1X; IN TOTAL, DURATION: 1 DAYS
     Route: 065
     Dates: start: 20230607, end: 20230607
  77. ISATUXIMAB [Suspect]
     Active Substance: ISATUXIMAB
     Indication: Plasma cell myeloma refractory
     Dosage: TIME INTERVAL: TOTAL: 800 MG, 1X; IN TOTAL, DURATION: 1 DAYS
     Route: 065
     Dates: start: 20230524, end: 20230524
  78. ISATUXIMAB [Suspect]
     Active Substance: ISATUXIMAB
     Indication: Plasma cell myeloma refractory
     Dosage: 800 MG, BIW, DURATION: 1 DAYS
     Route: 065
     Dates: start: 20230306, end: 20230306
  79. ISATUXIMAB [Suspect]
     Active Substance: ISATUXIMAB
     Indication: Plasma cell myeloma refractory
     Dosage: 800 MG, BIW, DURATION: 1 DAYS
     Route: 065
     Dates: start: 20221115, end: 20221115
  80. ISATUXIMAB [Suspect]
     Active Substance: ISATUXIMAB
     Indication: Plasma cell myeloma refractory
     Dosage: 800 MG, TWICE PER CYCLE, DURATION: 15 DAYS
     Route: 065
     Dates: start: 20230621, end: 20230705
  81. ISATUXIMAB [Suspect]
     Active Substance: ISATUXIMAB
     Indication: Plasma cell myeloma refractory
     Dosage: 800 MG, BIW, DURATION: 1 DAY
     Route: 065
     Dates: start: 20230412, end: 20230412
  82. ISATUXIMAB [Suspect]
     Active Substance: ISATUXIMAB
     Indication: Plasma cell myeloma refractory
     Dosage: 800 MG, BIW, DURATION: 1 DAY
     Route: 065
     Dates: start: 20230206, end: 20230206
  83. ISATUXIMAB [Suspect]
     Active Substance: ISATUXIMAB
     Indication: Plasma cell myeloma refractory
     Dosage: 800 MG, BIW, DURATION: 1 DAY
     Route: 065
     Dates: start: 20221227, end: 20221227
  84. ISATUXIMAB [Suspect]
     Active Substance: ISATUXIMAB
     Indication: Plasma cell myeloma refractory
     Dosage: 800 MG, BIW, DURATION: 1 DAY
     Route: 065
     Dates: start: 20221213, end: 20221213
  85. ISATUXIMAB [Suspect]
     Active Substance: ISATUXIMAB
     Indication: Plasma cell myeloma refractory
     Dosage: 800 MG, BIW
     Route: 065
     Dates: start: 20230320, end: 20230320
  86. ISATUXIMAB [Suspect]
     Active Substance: ISATUXIMAB
     Indication: Plasma cell myeloma refractory
     Dosage: TIME INTERVAL: TOTAL: 800 MG, 1X; IN TOTAL
     Route: 065
     Dates: start: 20230906
  87. ISATUXIMAB [Suspect]
     Active Substance: ISATUXIMAB
     Indication: Plasma cell myeloma refractory
     Dosage: TIME INTERVAL: TOTAL: 800 MG, 1X; IN TOTAL
     Route: 065
     Dates: start: 20230823, end: 20230823
  88. PAMIDRONATE [Concomitant]
     Active Substance: PAMIDRONATE DISODIUM
     Indication: Product used for unknown indication
     Dosage: 30 MG, QD, DURATION: 1 DAYS
     Dates: start: 20230503, end: 20230503
  89. ACETAMINOPHEN [Concomitant]
     Active Substance: ACETAMINOPHEN
     Indication: Supportive care
     Dosage: TIME INTERVAL: CYCLICAL: UNK, QCY; CYCLICAL, DURATION: 1 DAY?					;
     Dates: start: 20230320, end: 20230320
  90. ACETAMINOPHEN [Concomitant]
     Active Substance: ACETAMINOPHEN
     Indication: Supportive care
     Dosage: 1000 MG, QD, DURATION: 1 DAYS
     Dates: start: 20221213, end: 20221213
  91. ACETAMINOPHEN [Concomitant]
     Active Substance: ACETAMINOPHEN
     Indication: Supportive care
     Dosage: TIME INTERVAL: TOTAL: 1000 MG, 1X; IN TOTAL, DURATION: 1 DAYS
     Dates: start: 20230726, end: 20230726
  92. ACETAMINOPHEN [Concomitant]
     Active Substance: ACETAMINOPHEN
     Indication: Supportive care
     Dosage: 1000 MG, QD, DURATION: 1 DAYS
     Dates: start: 20230109, end: 20230109
  93. ACETAMINOPHEN [Concomitant]
     Active Substance: ACETAMINOPHEN
     Indication: Supportive care
     Dosage: 1000 MG, QD, DURATION: 1 DAYS
     Dates: start: 20230206, end: 20230206
  94. ACETAMINOPHEN [Concomitant]
     Active Substance: ACETAMINOPHEN
     Indication: Supportive care
     Dosage: TIME INTERVAL: TOTAL: 1000 MG, 1X; IN TOTAL, DURATION: 1 DAYS
     Dates: start: 20230524, end: 20230524
  95. ACETAMINOPHEN [Concomitant]
     Active Substance: ACETAMINOPHEN
     Indication: Supportive care
     Dosage: 1000 MG, QD, DURATION: 1 DAYS
     Dates: start: 20230320, end: 20230320
  96. ACETAMINOPHEN [Concomitant]
     Active Substance: ACETAMINOPHEN
     Indication: Supportive care
     Dosage: 1000 MG, TWICE PER CYCLE, DURATION: 15 DAYS
     Dates: start: 20230621, end: 20230705
  97. ACETAMINOPHEN [Concomitant]
     Active Substance: ACETAMINOPHEN
     Indication: Supportive care
     Dosage: 10 MG, QD, DURATION: 1 DAYS
     Dates: start: 20230412, end: 20230412
  98. ACETAMINOPHEN [Concomitant]
     Active Substance: ACETAMINOPHEN
     Indication: Supportive care
     Dosage: 1000 MG, QD, DURATION: 1 DAYS
     Dates: start: 20221115, end: 20221115
  99. ACETAMINOPHEN [Concomitant]
     Active Substance: ACETAMINOPHEN
     Indication: Supportive care
     Dosage: 1000 MG, QD, DURATION: 1 DAYS
     Dates: start: 20221012, end: 20221012
  100. ACETAMINOPHEN [Concomitant]
     Active Substance: ACETAMINOPHEN
     Indication: Supportive care
     Dosage: 1000 MG, QD, DURATION: 1 DAYS
     Dates: start: 20230306, end: 20230306
  101. ACETAMINOPHEN [Concomitant]
     Active Substance: ACETAMINOPHEN
     Indication: Supportive care
     Dosage: 1000 MG, QD, DURATION: 1 DAYS
     Dates: start: 20221227, end: 20221227
  102. ACETAMINOPHEN [Concomitant]
     Active Substance: ACETAMINOPHEN
     Indication: Supportive care
     Dosage: TIME INTERVAL: TOTAL: 1000 MG, 1X; IN TOTAL, DURATION: 1 DAYS
     Dates: start: 20230607, end: 20230607
  103. ACETAMINOPHEN [Concomitant]
     Active Substance: ACETAMINOPHEN
     Indication: Supportive care
     Dosage: TIME INTERVAL: CYCLICAL: UNK UNK, QCY; CYCLICAL, DURATION: 1 DAY?					;
     Dates: start: 20221019, end: 20221019
  104. ACETAMINOPHEN [Concomitant]
     Active Substance: ACETAMINOPHEN
     Indication: Supportive care
     Dosage: TIME INTERVAL: CYCLICAL: UNK UNK, QCY; CYCLICAL, DURATION: 1 DAY
     Dates: start: 20221102, end: 20221102
  105. ACETAMINOPHEN [Concomitant]
     Active Substance: ACETAMINOPHEN
     Indication: Supportive care
     Dosage: TIME INTERVAL: CYCLICAL: UNK, QCY; CYCLICAL, DURATION: 1 DAY
     Dates: start: 20230510, end: 20230510
  106. ACETAMINOPHEN [Concomitant]
     Active Substance: ACETAMINOPHEN
     Indication: Supportive care
     Dosage: TIME INTERVAL: CYCLICAL: UNK, QCY; CYCLICAL, DURATION: 1 DAY
     Dates: start: 20230412, end: 20230412
  107. ACETAMINOPHEN [Concomitant]
     Active Substance: ACETAMINOPHEN
     Indication: Supportive care
     Dosage: TIME INTERVAL: CYCLICAL: UNK, QCY; CYCLICAL, DURATION: 1 DAY
     Dates: start: 20230705, end: 20230705
  108. ACETAMINOPHEN [Concomitant]
     Active Substance: ACETAMINOPHEN
     Indication: Supportive care
     Dosage: TIME INTERVAL: CYCLICAL: UNK, QCY; CYCLICAL, DURATION: 1 DAY?					;
     Dates: start: 20230220, end: 20230220
  109. ACETAMINOPHEN [Concomitant]
     Active Substance: ACETAMINOPHEN
     Indication: Supportive care
     Dosage: TIME INTERVAL: CYCLICAL: UNK, QCY; CYCLICAL, DURATION: 1 DAY?					;
     Dates: start: 20230306, end: 20230306
  110. ACETAMINOPHEN [Concomitant]
     Active Substance: ACETAMINOPHEN
     Indication: Supportive care
     Dosage: TIME INTERVAL: CYCLICAL: UNK, QCY; CYCLICAL, DURATION: 1 DAY
     Dates: start: 20230621, end: 20230621
  111. ACETAMINOPHEN [Concomitant]
     Active Substance: ACETAMINOPHEN
     Indication: Supportive care
     Dosage: TIME INTERVAL: CYCLICAL: UNK UNK, QCY; CYCLICAL, DURATION: 1 DAY?					;
     Dates: start: 20230109, end: 20230109
  112. ACETAMINOPHEN [Concomitant]
     Active Substance: ACETAMINOPHEN
     Indication: Supportive care
     Dosage: TIME INTERVAL: CYCLICAL: UNK, QCY; CYCLICAL, DUARTION: 1 DAY
     Dates: start: 20230206, end: 20230206
  113. ACETAMINOPHEN [Concomitant]
     Active Substance: ACETAMINOPHEN
     Indication: Supportive care
     Dosage: TIME INTERVAL: CYCLICAL: UNK, QCY; CYCLICAL, DURATION: 1 DAY?					;
     Dates: start: 20230123, end: 20230123
  114. ACETAMINOPHEN [Concomitant]
     Active Substance: ACETAMINOPHEN
     Indication: Supportive care
     Dosage: UNK; ;
     Dates: start: 2020
  115. ACETAMINOPHEN [Concomitant]
     Active Substance: ACETAMINOPHEN
     Indication: Supportive care
     Dosage: TIME INTERVAL: CYCLICAL: UNK, QCY; CYCLICAL, DURATION: 1 DAY
     Dates: start: 20230607, end: 20230607
  116. ACETAMINOPHEN [Concomitant]
     Active Substance: ACETAMINOPHEN
     Indication: Supportive care
     Dosage: TIME INTERVAL: CYCLICAL: UNK UNK, QCY; CYCLICAL, DURATION: 1 DAY?					;
     Dates: start: 20221227, end: 20221227
  117. ACETAMINOPHEN [Concomitant]
     Active Substance: ACETAMINOPHEN
     Indication: Supportive care
     Dosage: TIME INTERVAL: CYCLICAL: UNK, QCY; CYCLICAL, DURATION: 1 DAY
     Dates: start: 20230726, end: 20230726
  118. ACETAMINOPHEN [Concomitant]
     Active Substance: ACETAMINOPHEN
     Indication: Supportive care
     Dosage: TIME INTERVAL: CYCLICAL: UNK, QCY; CYCLICAL, DURATION: 1 DAY
     Dates: start: 20230524, end: 20230524
  119. PREGABALIN [Concomitant]
     Active Substance: PREGABALIN
     Indication: Neuropathy peripheral
     Dosage: UNK; ;
     Dates: start: 2020
  120. PREGABALIN [Concomitant]
     Active Substance: PREGABALIN
     Indication: Neuropathy peripheral
     Dosage: UNK; ;
     Dates: start: 2018
  121. RIVAROXABAN [Concomitant]
     Active Substance: RIVAROXABAN
     Indication: Thrombosis prophylaxis
     Dosage: 10 MG, QD, DURATION: 29 DAYS
     Dates: start: 20230306, end: 20230403
  122. RIVAROXABAN [Concomitant]
     Active Substance: RIVAROXABAN
     Indication: Thrombosis prophylaxis
     Dosage: 10 MG, QD, DURATION: 29 DAYS
     Dates: start: 20230206, end: 20230306
  123. RIVAROXABAN [Concomitant]
     Active Substance: RIVAROXABAN
     Indication: Thrombosis prophylaxis
     Dosage: 10 MG, QD, DURATION: 29 DAYS
     Dates: start: 20221012, end: 20221109
  124. RIVAROXABAN [Concomitant]
     Active Substance: RIVAROXABAN
     Indication: Thrombosis prophylaxis
     Dosage: UNK; ;
     Dates: start: 2020
  125. RIVAROXABAN [Concomitant]
     Active Substance: RIVAROXABAN
     Indication: Thrombosis prophylaxis
     Dosage: 10 MG, QD, DURATION: 29 DAYS
     Dates: start: 20230109, end: 20230206
  126. RIVAROXABAN [Concomitant]
     Active Substance: RIVAROXABAN
     Indication: Thrombosis prophylaxis
     Dosage: 10 MG, QD, DURATION: 29 DAYS
     Dates: start: 20230524, end: 20230621
  127. RIVAROXABAN [Concomitant]
     Active Substance: RIVAROXABAN
     Indication: Thrombosis prophylaxis
     Dosage: 10 MG, QD, DURATION: 29 DAYS
     Dates: start: 20230412, end: 20230510
  128. RIVAROXABAN [Concomitant]
     Active Substance: RIVAROXABAN
     Indication: Thrombosis prophylaxis
     Dosage: 10 MG, QD, DURATION: 29 DAYS
     Dates: start: 20221115, end: 20221213
  129. SODIUM BICARBONATE [Concomitant]
     Active Substance: SODIUM BICARBONATE
     Indication: Chronic kidney disease
     Dosage: UNK; ;
     Dates: start: 20230418
  130. SODIUM BICARBONATE [Concomitant]
     Active Substance: SODIUM BICARBONATE
     Indication: Chronic kidney disease
     Dosage: UNK; ;
     Dates: start: 2020
  131. TAMSULOSIN [Concomitant]
     Active Substance: TAMSULOSIN
     Indication: Benign prostatic hyperplasia
     Dosage: UNK; ;
     Dates: start: 20230418
  132. TAMSULOSIN [Concomitant]
     Active Substance: TAMSULOSIN
     Indication: Benign prostatic hyperplasia
     Dosage: UNK; ;
     Dates: start: 2020
  133. POMALIDOMIDE [Suspect]
     Active Substance: POMALIDOMIDE
     Indication: Plasma cell myeloma refractory
     Dosage: 2 MG, QD, DURATION: 22 DAYS
     Route: 065
     Dates: start: 20230109, end: 20230130
  134. POMALIDOMIDE [Suspect]
     Active Substance: POMALIDOMIDE
     Indication: Plasma cell myeloma refractory
     Dosage: 2 MG, QD, DURATION: 22 DAYS
     Route: 065
     Dates: start: 20230412, end: 20230503
  135. POMALIDOMIDE [Suspect]
     Active Substance: POMALIDOMIDE
     Indication: Plasma cell myeloma refractory
     Dosage: 3 MG, QD, DURATION: 22 DAYS
     Route: 065
     Dates: start: 20221012, end: 20221102
  136. POMALIDOMIDE [Suspect]
     Active Substance: POMALIDOMIDE
     Indication: Plasma cell myeloma refractory
     Dosage: 3 MG, QD, DURATION: 28 DAYS
     Route: 065
     Dates: start: 20221213, end: 20230109
  137. POMALIDOMIDE [Suspect]
     Active Substance: POMALIDOMIDE
     Indication: Plasma cell myeloma refractory
     Dosage: 2 MG, QD, DURATION: 22 DAYS
     Route: 065
     Dates: start: 20230306, end: 20230327
  138. POMALIDOMIDE [Suspect]
     Active Substance: POMALIDOMIDE
     Indication: Plasma cell myeloma refractory
     Dosage: 2 MG; DURATION: 29 DAYS
     Route: 065
     Dates: start: 20230524, end: 20230621
  139. POMALIDOMIDE [Suspect]
     Active Substance: POMALIDOMIDE
     Indication: Plasma cell myeloma refractory
     Dosage: 2 MG, QD, DURATION: 22 DAYS
     Route: 065
     Dates: start: 20230206, end: 20230227
  140. POMALIDOMIDE [Suspect]
     Active Substance: POMALIDOMIDE
     Indication: Plasma cell myeloma refractory
     Dosage: 2 MG, QD, DURATION: 22 DAYS
     Route: 065
     Dates: start: 20230712, end: 20230802
  141. ACYCLOVIR [Concomitant]
     Active Substance: ACYCLOVIR
     Indication: Antiviral prophylaxis
     Dosage: UNK; ;
     Dates: start: 2020
  142. CALCIUM CARBONATE\CHOLECALCIFEROL [Concomitant]
     Active Substance: CALCIUM CARBONATE\CHOLECALCIFEROL
     Indication: Prophylaxis
     Dosage: UNK; ;
     Dates: start: 2023
  143. CALCIUM CARBONATE\CHOLECALCIFEROL [Concomitant]
     Active Substance: CALCIUM CARBONATE\CHOLECALCIFEROL
     Indication: Prophylaxis
     Dosage: 1 DF, QD
     Dates: start: 20230503
  144. CALCIUM CARBONATE\CHOLECALCIFEROL [Concomitant]
     Active Substance: CALCIUM CARBONATE\CHOLECALCIFEROL
     Indication: Prophylaxis
     Dosage: UNK; ;
     Dates: start: 2020
  145. ALLOPURINOL [Concomitant]
     Active Substance: ALLOPURINOL
     Indication: Prophylaxis
     Dosage: UNK; ;
     Dates: start: 2020
  146. BISOPROLOL [Concomitant]
     Active Substance: BISOPROLOL\BISOPROLOL FUMARATE
     Indication: Cardiac failure
     Dosage: UNK; ;
     Dates: start: 2020
  147. BUMETANIDE [Concomitant]
     Active Substance: BUMETANIDE
     Indication: Cardiac failure
     Dosage: UNK; ;
     Dates: start: 20221213
  148. CHLORPHENIRAMINE MALEATE [Concomitant]
     Active Substance: CHLORPHENIRAMINE MALEATE
     Indication: Supportive care
     Dosage: TIME INTERVAL: TOTAL: 4 MG, 1X; IN TOTAL, DURATION: 1 DAYS
     Dates: start: 20230726, end: 20230726
  149. CHLORPHENIRAMINE MALEATE [Concomitant]
     Active Substance: CHLORPHENIRAMINE MALEATE
     Indication: Supportive care
     Dosage: 4 MG, QD, DURATION: 1 DAYS
     Dates: start: 20221213, end: 20221213
  150. CHLORPHENIRAMINE MALEATE [Concomitant]
     Active Substance: CHLORPHENIRAMINE MALEATE
     Indication: Supportive care
     Dosage: 4 MG, QD, DURATION: 1 DAYS
     Dates: start: 20221012, end: 20221012
  151. CHLORPHENIRAMINE MALEATE [Concomitant]
     Active Substance: CHLORPHENIRAMINE MALEATE
     Indication: Supportive care
     Dosage: 4 MG, QD, DURATION: 1 DAY
     Dates: start: 20230206, end: 20230206
  152. CHLORPHENIRAMINE MALEATE [Concomitant]
     Active Substance: CHLORPHENIRAMINE MALEATE
     Indication: Supportive care
     Dosage: 4 MG, QD, DURATION: 1 DAYS
     Dates: start: 20230412, end: 20230412
  153. CHLORPHENIRAMINE MALEATE [Concomitant]
     Active Substance: CHLORPHENIRAMINE MALEATE
     Indication: Supportive care
     Dosage: 4 MG, QD, DURATION: 1 DAYS
     Dates: start: 20230306, end: 20230306
  154. CHLORPHENIRAMINE MALEATE [Concomitant]
     Active Substance: CHLORPHENIRAMINE MALEATE
     Indication: Supportive care
     Dosage: TIME INTERVAL: TOTAL: 4 MG, 1X; IN TOTAL, DURATION: 1 DAYS
     Dates: start: 20230607, end: 20230607
  155. CHLORPHENIRAMINE MALEATE [Concomitant]
     Active Substance: CHLORPHENIRAMINE MALEATE
     Indication: Supportive care
     Dosage: 4 MG, QD, DURATION: 1 DAYS
     Dates: start: 20230320, end: 20230320
  156. CHLORPHENIRAMINE MALEATE [Concomitant]
     Active Substance: CHLORPHENIRAMINE MALEATE
     Indication: Supportive care
     Dosage: TIME INTERVAL: 1 CYCLICAL: 4 MG, QD, DURATION: 1 DAYS
     Dates: start: 20221115, end: 20221115
  157. CHLORPHENIRAMINE MALEATE [Concomitant]
     Active Substance: CHLORPHENIRAMINE MALEATE
     Indication: Supportive care
     Dosage: 4 MG, QD, DURATION: 1 DAYS
     Dates: start: 20221227, end: 20221227
  158. CHLORPHENIRAMINE MALEATE [Concomitant]
     Active Substance: CHLORPHENIRAMINE MALEATE
     Indication: Supportive care
     Dosage: TIME INTERVAL: CYCLICAL: 4 MG,TO BE GIVEN 15-60 MINUTES ISATUXIAB; DURATION: 1 DAY
     Dates: start: 20230109, end: 20230109
  159. CHLORPHENIRAMINE MALEATE [Concomitant]
     Active Substance: CHLORPHENIRAMINE MALEATE
     Indication: Supportive care
     Dosage: TIME INTERVAL: TOTAL: 4 MG, 1X; IN TOTAL, DURATION: 1 DAYS
     Dates: start: 20230524, end: 20230524
  160. CHLORPHENIRAMINE MALEATE [Concomitant]
     Active Substance: CHLORPHENIRAMINE MALEATE
     Indication: Supportive care
     Dosage: UNK; DURATION: 1 DAY
     Dates: start: 20221026, end: 20221026
  161. CHLORPHENIRAMINE MALEATE [Concomitant]
     Active Substance: CHLORPHENIRAMINE MALEATE
     Indication: Supportive care
     Dosage: TIME INTERVAL: CYCLICAL: UNK UNK, QCY; CYCLICAL, DURATION: 1 DAY
     Dates: start: 20230705, end: 20230705
  162. CHLORPHENIRAMINE MALEATE [Concomitant]
     Active Substance: CHLORPHENIRAMINE MALEATE
     Indication: Supportive care
     Dosage: TIME INTERVAL: CYCLICAL: UNK UNK, QCY; CYCLICAL, DURATION: 1 DAY
     Dates: start: 20230220, end: 20230220
  163. CHLORPHENIRAMINE MALEATE [Concomitant]
     Active Substance: CHLORPHENIRAMINE MALEATE
     Indication: Supportive care
     Dosage: TIME INTERVAL: CYCLICAL: UNK UNK, QCY; CYCLICAL, DURATION: 1 DAY
     Dates: start: 20230123, end: 20230123
  164. CHLORPHENIRAMINE MALEATE [Concomitant]
     Active Substance: CHLORPHENIRAMINE MALEATE
     Indication: Supportive care
     Dosage: UNK; DURATION: 1 DAY
     Dates: start: 20230621, end: 20230621
  165. CHLORPHENIRAMINE MALEATE [Concomitant]
     Active Substance: CHLORPHENIRAMINE MALEATE
     Indication: Supportive care
     Dosage: UNK; DURATION: 1 DAY
     Dates: start: 20221102, end: 20221102
  166. CHLORPHENIRAMINE MALEATE [Concomitant]
     Active Substance: CHLORPHENIRAMINE MALEATE
     Indication: Supportive care
     Dosage: TIME INTERVAL: CYCLICAL: UNK UNK, QCY; CYCLICAL, DURATION: 1 DAY
     Dates: start: 20230726, end: 20230726
  167. CHLORPHENIRAMINE MALEATE [Concomitant]
     Active Substance: CHLORPHENIRAMINE MALEATE
     Indication: Supportive care
     Dosage: TIME INTERVAL: CYCLICAL: UNK UNK, QCY; CYCLICAL, DURATION: 1 DAY?					;
     Dates: start: 20230524, end: 20230524
  168. CHLORPHENIRAMINE MALEATE [Concomitant]
     Active Substance: CHLORPHENIRAMINE MALEATE
     Indication: Supportive care
     Dosage: TIME INTERVAL: CYCLICAL: UNK UNK, QCY; CYCLICAL, DURATION: 1 DAY?					;
     Dates: start: 20230306, end: 20230306
  169. CHLORPHENIRAMINE MALEATE [Concomitant]
     Active Substance: CHLORPHENIRAMINE MALEATE
     Indication: Supportive care
     Dosage: UNK; DURATION: 1 DAY
     Dates: start: 20230607, end: 20230607
  170. CHLORPHENIRAMINE MALEATE [Concomitant]
     Active Substance: CHLORPHENIRAMINE MALEATE
     Indication: Supportive care
     Dosage: TIME INTERVAL: CYCLICAL: UNK UNK, QCY; CYCLICAL, DURATION: 1 DAY
     Dates: start: 20230412, end: 20230412
  171. CHLORPHENIRAMINE MALEATE [Concomitant]
     Active Substance: CHLORPHENIRAMINE MALEATE
     Indication: Supportive care
     Dosage: TIME INTERVAL: CYCLICAL: UNK UNK, QCY; CYCLICAL, DURATION: 1 DAY
     Dates: start: 20230510, end: 20230510
  172. CHLORPHENIRAMINE MALEATE [Concomitant]
     Active Substance: CHLORPHENIRAMINE MALEATE
     Indication: Supportive care
     Dosage: TIME INTERVAL: CYCLICAL: UNK UNK, QCY; CYCLICAL, DURATION: 1 DAY
     Dates: start: 20230320, end: 20230320
  173. CHLORPHENIRAMINE MALEATE [Concomitant]
     Active Substance: CHLORPHENIRAMINE MALEATE
     Indication: Supportive care
     Dosage: UNK; DURATION: 1 DAY
     Dates: start: 20221227, end: 20221227
  174. CALCIUM\VITAMIN D [Concomitant]
     Active Substance: CALCIUM\VITAMIN D
     Indication: Supportive care
     Dosage: 1 DF;
     Dates: start: 20221115, end: 20230206
  175. DEXAMETHASONE [Concomitant]
     Active Substance: DEXAMETHASONE
     Indication: Supportive care
     Dosage: TIME INTERVAL: CYCLICAL: UNK UNK, QCY; CYCLICAL, DURATION: 1 DAY
     Dates: start: 20230510, end: 20230510
  176. DEXAMETHASONE [Concomitant]
     Active Substance: DEXAMETHASONE
     Indication: Supportive care
     Dosage: TIME INTERVAL: CYCLICAL: UNK UNK, QCY; CYCLICAL, DURATION: 1 DAY
     Dates: start: 20221115, end: 20221115
  177. DEXAMETHASONE [Concomitant]
     Active Substance: DEXAMETHASONE
     Indication: Supportive care
     Dosage: TIME INTERVAL: CYCLICAL: UNK UNK, QCY; CYCLICAL, DURATION: 1 DAY
     Dates: start: 20230206, end: 20230206
  178. DEXAMETHASONE [Concomitant]
     Active Substance: DEXAMETHASONE
     Indication: Supportive care
     Dosage: TIME INTERVAL: CYCLICAL: UNK UNK, QCY; CYCLICAL, DURATION: 1 DAY
     Dates: start: 20230320, end: 20230320
  179. DEXAMETHASONE [Concomitant]
     Active Substance: DEXAMETHASONE
     Indication: Supportive care
     Dosage: TIME INTERVAL: CYCLICAL: UNK UNK, QCY; CYCLICAL, DURATION: 1 DAY
     Dates: start: 20221019, end: 20221019
  180. DEXAMETHASONE [Concomitant]
     Active Substance: DEXAMETHASONE
     Indication: Supportive care
     Dosage: TIME INTERVAL: CYCLICAL: UNK UNK, QCY; CYCLICAL, DURATION: 1 DAY
     Dates: start: 20221213, end: 20221213
  181. DEXAMETHASONE [Concomitant]
     Active Substance: DEXAMETHASONE
     Indication: Supportive care
     Dosage: TIME INTERVAL: CYCLICAL: UNK UNK, QCY; CYCLICAL, DURATION: 1 DAY
     Dates: start: 20230705, end: 20230705
  182. DEXAMETHASONE [Concomitant]
     Active Substance: DEXAMETHASONE
     Indication: Supportive care
     Dosage: TIME INTERVAL: CYCLICAL: UNK UNK, QCY; CYCLICAL, DURATION: 1 DAY
     Dates: start: 20221026, end: 20221026
  183. DEXAMETHASONE [Concomitant]
     Active Substance: DEXAMETHASONE
     Indication: Supportive care
     Dosage: TIME INTERVAL: CYCLICAL: UNK UNK, QCY; CYCLICAL, DURATION: 1 DAY
     Dates: start: 20230823, end: 20230823
  184. DEXAMETHASONE [Concomitant]
     Active Substance: DEXAMETHASONE
     Indication: Supportive care
     Dosage: TIME INTERVAL: CYCLICAL: UNK UNK, QCY; CYCLICAL, DURATION: 1 DAY
     Dates: start: 20221012, end: 20221012
  185. DEXAMETHASONE [Concomitant]
     Active Substance: DEXAMETHASONE
     Indication: Supportive care
     Dosage: TIME INTERVAL: CYCLICAL: UNK UNK, QCY; CYCLICAL, DURATION: 1 DAY
     Dates: start: 20230109, end: 20230109
  186. DEXAMETHASONE [Concomitant]
     Active Substance: DEXAMETHASONE
     Indication: Supportive care
     Dosage: TIME INTERVAL: CYCLICAL: UNK UNK, QCY; CYCLICAL, DURATION: 1 DAY
     Dates: start: 20230412, end: 20230412
  187. DEXAMETHASONE [Concomitant]
     Active Substance: DEXAMETHASONE
     Indication: Supportive care
     Dosage: TIME INTERVAL: CYCLICAL: UNK UNK, QCY; CYCLICAL, DURATION: 1 DAY
     Dates: start: 20230123, end: 20230123
  188. DEXAMETHASONE [Concomitant]
     Active Substance: DEXAMETHASONE
     Indication: Supportive care
     Dosage: TIME INTERVAL: CYCLICAL: UNK UNK, QCY; CYCLICAL, DURATION: 1 DAY
     Dates: start: 20230306, end: 20230306
  189. DEXAMETHASONE [Concomitant]
     Active Substance: DEXAMETHASONE
     Indication: Supportive care
     Dosage: TIME INTERVAL: CYCLICAL: UNK UNK, QCY; CYCLICAL, DURATION: 1 DAY
     Dates: start: 20230524, end: 20230524
  190. DEXAMETHASONE [Concomitant]
     Active Substance: DEXAMETHASONE
     Indication: Supportive care
     Dosage: TIME INTERVAL: CYCLICAL: UNK UNK, QCY; CYCLICAL, DURATION: 1 DAY
     Dates: start: 20221102, end: 20221102
  191. DEXAMETHASONE [Concomitant]
     Active Substance: DEXAMETHASONE
     Indication: Supportive care
     Dosage: TIME INTERVAL: CYCLICAL: UNK UNK, QCY; CYCLICAL, DURATION: 1 DAY
     Dates: start: 20230607, end: 20230607
  192. DEXAMETHASONE [Concomitant]
     Active Substance: DEXAMETHASONE
     Indication: Supportive care
     Dosage: TIME INTERVAL: CYCLICAL: UNK UNK, QCY; CYCLICAL, DURATION: 1 DAY
     Dates: start: 20221227, end: 20221227
  193. DEXAMETHASONE [Concomitant]
     Active Substance: DEXAMETHASONE
     Indication: Supportive care
     Dosage: TIME INTERVAL: CYCLICAL: UNK UNK, QCY; CYCLICAL, DURATION: 1 DAY
     Dates: start: 20230220, end: 20230220
  194. DEXAMETHASONE [Concomitant]
     Active Substance: DEXAMETHASONE
     Indication: Supportive care
     Dosage: TIME INTERVAL: CYCLICAL: UNK UNK, QCY; CYCLICAL, DURATION: 1 DAY
     Dates: start: 20230621, end: 20230621

REACTIONS (2)
  - Acute kidney injury [Recovered/Resolved]
  - Hyperglycaemia [Recovered/Resolved with Sequelae]

NARRATIVE: CASE EVENT DATE: 20230808
